FAERS Safety Report 13369380 (Version 1)
Quarter: 2017Q1

REPORT INFORMATION
  Report Type: Spontaneous
  Country: US (occurrence: US)
  Receive Date: 20170324
  Receipt Date: 20170324
  Transmission Date: 20170429
  Serious: No
  Sender: FDA-Public Use
  Company Number: US-TEVA-744353ACC

PATIENT
  Age: 37 Year
  Sex: Female
  Weight: 95.34 kg

DRUGS (1)
  1. PARAGARD T 380A [Suspect]
     Active Substance: COPPER
     Indication: CONTRACEPTION
     Dates: start: 20170124, end: 20170220

REACTIONS (3)
  - Dysmenorrhoea [Recovered/Resolved]
  - Device expulsion [Recovered/Resolved]
  - Menorrhagia [Recovered/Resolved]

NARRATIVE: CASE EVENT DATE: 20170220
